FAERS Safety Report 6943849-3 (Version None)
Quarter: 2010Q3

REPORT INFORMATION
  Report Type: 
  Country: None (occurrence: None)
  Receive Date: 20100826
  Receipt Date: 20100823
  Transmission Date: 20110219
  Serious: Yes (Hospitalization, Other)
  Sender: FDA-Public Use
  Company Number: A0875000A

PATIENT
  Age: 42 Year
  Sex: Female

DRUGS (31)
  1. EPOPROSTENOL [Suspect]
  2. DEMADEX [Suspect]
  3. ANTIBIOTICS [Suspect]
  4. BLINDED TRIAL MEDICATION [Concomitant]
     Indication: PULMONARY ARTERIAL HYPERTENSION
     Route: 048
     Dates: start: 20100713
  5. HYDROCHLOROTHIAZIDE [Concomitant]
  6. SPIRONOLACTONE [Concomitant]
  7. DIGOXIN [Concomitant]
  8. COUMADIN [Concomitant]
  9. SINGULAIR [Concomitant]
  10. RHINOCORT [Concomitant]
  11. PERIDEX [Concomitant]
  12. GYNE-LOTRIMIN [Concomitant]
  13. ACETAMINOPHEN [Concomitant]
  14. DOCUSATE [Concomitant]
  15. DOXYCYCLINE [Concomitant]
  16. LEVAQUIN [Concomitant]
  17. CYMBALTA [Concomitant]
  18. LUNESTA [Concomitant]
  19. ALLEGRA [Concomitant]
  20. HYDROXYZINE PAMOATE [Concomitant]
  21. LACTOBACILLUS ACIDOPHILUS [Concomitant]
  22. OSCAL [Concomitant]
  23. LANSOPRAZOLE [Concomitant]
  24. URO-MAG [Concomitant]
  25. MULTI-VITAMIN [Concomitant]
  26. POTASSIUM CHLORIDE [Concomitant]
  27. MIRAPEX [Concomitant]
  28. CARAFATE [Concomitant]
  29. ULTRAM [Concomitant]
  30. IMMUNE GLOBULIN NOS [Concomitant]
  31. ASTELIN [Concomitant]

REACTIONS (7)
  - CANDIDIASIS [None]
  - DYSPHAGIA [None]
  - EPIGASTRIC DISCOMFORT [None]
  - HYPOKALAEMIA [None]
  - NAUSEA [None]
  - PRESYNCOPE [None]
  - VULVOVAGINAL MYCOTIC INFECTION [None]
